FAERS Safety Report 8892117 (Version 1)
Quarter: 2012Q4

REPORT INFORMATION
  Report Type: 
  Country: US (occurrence: US)
  Receive Date: 20121107
  Receipt Date: 20121107
  Transmission Date: 20130627
  Serious: No
  Sender: FDA-Public Use
  Company Number: US-AMGEN-USASP2011055532

PATIENT
  Sex: Male

DRUGS (1)
  1. ENBREL [Suspect]
     Indication: RHEUMATOID ARTHRITIS
     Dosage: 50 mg, qwk
     Dates: start: 20110814

REACTIONS (5)
  - Exfoliative rash [Unknown]
  - Scar [Unknown]
  - Rash erythematous [Unknown]
  - Injection site pruritus [Unknown]
  - Injection site swelling [Unknown]
